FAERS Safety Report 12585068 (Version 1)
Quarter: 2016Q3

REPORT INFORMATION
  Report Type: Spontaneous
  Country: US (occurrence: US)
  Receive Date: 20160723
  Receipt Date: 20160723
  Transmission Date: 20161109
  Serious: No
  Sender: FDA-Public Use
  Company Number: US-009507513-1607USA003243

PATIENT
  Age: 20 Year
  Sex: Female
  Weight: 65.31 kg

DRUGS (2)
  1. NEXPLANON [Suspect]
     Active Substance: ETONOGESTREL
     Indication: CONTRACEPTION
     Dosage: ONE ROD/ 3 YEARS
     Route: 059
     Dates: start: 20160119
  2. VITAMINS (UNSPECIFIED) [Concomitant]
     Active Substance: VITAMINS

REACTIONS (3)
  - Weight increased [Unknown]
  - Increased appetite [Unknown]
  - Acne [Unknown]

NARRATIVE: CASE EVENT DATE: 20160219
